FAERS Safety Report 18818864 (Version 1)
Quarter: 2021Q1

REPORT INFORMATION
  Report Type: Spontaneous
  Country: US (occurrence: US)
  Receive Date: 20210201
  Receipt Date: 20210201
  Transmission Date: 20210419
  Serious: Yes (Hospitalization)
  Sender: FDA-Public Use
  Company Number: US-BAYER-2021-035594

PATIENT
  Age: 64 Year
  Sex: Male

DRUGS (3)
  1. BAYER LOW DOSE [Suspect]
     Active Substance: ASPIRIN
  2. TYLENOL COLD MAX [Concomitant]
  3. ASPIRIN (CARDIO) [Suspect]
     Active Substance: ASPIRIN

REACTIONS (1)
  - Magnetic resonance imaging brain [None]
